FAERS Safety Report 9624356 (Version 1)
Quarter: 2013Q4

REPORT INFORMATION
  Report Type: Spontaneous
  Country: US (occurrence: US)
  Receive Date: 20131015
  Receipt Date: 20131015
  Transmission Date: 20140711
  Serious: Yes (Other)
  Sender: FDA-Public Use
  Company Number: US-GLAXOSMITHKLINE-A1045436A

PATIENT
  Age: 74 Year
  Sex: Male

DRUGS (2)
  1. COREG [Suspect]
     Indication: PRODUCT USED FOR UNKNOWN INDICATION
     Route: 065
     Dates: start: 20110523
  2. AVODART [Concomitant]
     Dates: start: 200912

REACTIONS (1)
  - Cardiac operation [Unknown]
